FAERS Safety Report 8333504-X (Version None)
Quarter: 2012Q2

REPORT INFORMATION
  Report Type: 
  Country: None (occurrence: None)
  Receive Date: 20120503
  Receipt Date: 20101105
  Transmission Date: 20120825
  Serious: No
  Sender: FDA-Public Use
  Company Number: US-TEVA-2010005814

PATIENT
  Sex: Male
  Weight: 34.958 kg

DRUGS (2)
  1. BIONIC BOOST [Concomitant]
  2. NUVIGIL [Suspect]
     Indication: ATTENTION DEFICIT/HYPERACTIVITY DISORDER
     Dosage: 150 MILLIGRAM;
     Route: 048
     Dates: start: 20101105

REACTIONS (5)
  - ABNORMAL BEHAVIOUR [None]
  - NERVOUSNESS [None]
  - BRUXISM [None]
  - AGITATION [None]
  - DRUG PRESCRIBING ERROR [None]
